FAERS Safety Report 14205459 (Version 1)
Quarter: 2017Q4

REPORT INFORMATION
  Report Type: Spontaneous
  Country: FR (occurrence: FR)
  Receive Date: 20171120
  Receipt Date: 20171120
  Transmission Date: 20180321
  Serious: Yes (Death, Other)
  Sender: FDA-Public Use
  Company Number: FR-009507513-1711FRA006453

PATIENT
  Sex: Male

DRUGS (1)
  1. KEYTRUDA [Suspect]
     Active Substance: PEMBROLIZUMAB
     Indication: NON-SMALL CELL LUNG CANCER
     Dosage: 2 MG/KG INFUSION 30 MINUTES EVERY THREE WEEKS
     Dates: start: 201708

REACTIONS (2)
  - Colitis [Unknown]
  - Death [Fatal]

NARRATIVE: CASE EVENT DATE: 2017
